FAERS Safety Report 5278152-3 (Version None)
Quarter: 2007Q1

REPORT INFORMATION
  Report Type: 
  Country: None (occurrence: None)
  Receive Date: 20070328
  Receipt Date: 20070323
  Transmission Date: 20070707
  Serious: Yes (Other)
  Sender: FDA-Public Use
  Company Number: CA-SP-2007-00898

PATIENT
  Age: 67 Year
  Sex: Female

DRUGS (1)
  1. TUBERSOL [Suspect]
     Indication: TUBERCULIN TEST
     Route: 065
     Dates: start: 20060213

REACTIONS (8)
  - ANAPHYLACTIC REACTION [None]
  - CHEST DISCOMFORT [None]
  - DIZZINESS [None]
  - MUSCLE TWITCHING [None]
  - PARAESTHESIA MUCOSAL [None]
  - SYNCOPE VASOVAGAL [None]
  - TONGUE DISORDER [None]
  - TREMOR [None]
